FAERS Safety Report 11555788 (Version 1)
Quarter: 2015Q3

REPORT INFORMATION
  Report Type: Spontaneous
  Country: GB (occurrence: FR)
  Receive Date: 20150925
  Receipt Date: 20150925
  Transmission Date: 20151125
  Serious: Yes (Death, Other)
  Sender: FDA-Public Use
  Company Number: FR-FRESENIUS KABI-FK201504493

PATIENT
  Age: 3 Year
  Sex: Male

DRUGS (1)
  1. VALPROATE [Suspect]
     Active Substance: VALPROIC ACID
     Indication: FEBRILE CONVULSION
     Route: 065

REACTIONS (4)
  - Metabolic disorder [Fatal]
  - Mitochondrial DNA mutation [Fatal]
  - Nervous system disorder [Fatal]
  - Hepatic failure [Fatal]
